FAERS Safety Report 11268952 (Version 1)
Quarter: 2015Q3

REPORT INFORMATION
  Report Type: Other
  Country: IT (occurrence: IT)
  Receive Date: 20150714
  Receipt Date: 20150714
  Transmission Date: 20151125
  Serious: Yes (Hospitalization, Other)
  Sender: FDA-Public Use
  Company Number: IT-ORCHID HEALTHCARE-1040523

PATIENT
  Age: 78 Year
  Sex: Male

DRUGS (1)
  1. LEVETIRACETAM. [Suspect]
     Active Substance: LEVETIRACETAM
     Indication: EPILEPSY
     Route: 048

REACTIONS (12)
  - Weight decreased [Recovered/Resolved]
  - Asthenia [Recovered/Resolved]
  - Drug level above therapeutic [Recovered/Resolved]
  - Decreased appetite [Recovered/Resolved]
  - Gamma-glutamyltransferase increased [Recovered/Resolved]
  - Nausea [Recovered/Resolved]
  - Glomerular filtration rate decreased [Recovered/Resolved]
  - Hypertransaminasaemia [Recovered/Resolved]
  - Monoparesis [Recovered/Resolved]
  - Haemoglobin decreased [Recovered/Resolved]
  - Blood creatinine increased [Recovered/Resolved]
  - Hypoproteinaemia [Recovered/Resolved]
